FAERS Safety Report 6902962-7 (Version None)
Quarter: 2010Q3

REPORT INFORMATION
  Report Type: 
  Country: None (occurrence: None)
  Receive Date: 20100803
  Receipt Date: 20080708
  Transmission Date: 20110219
  Serious: No
  Sender: FDA-Public Use
  Company Number: US-PFIZER INC-2008042546

PATIENT
  Sex: Female
  Weight: 91.2 kg

DRUGS (10)
  1. LYRICA [Suspect]
     Indication: BACK PAIN
     Dates: start: 20080501, end: 20080602
  2. LYRICA [Suspect]
     Indication: FIBROMYALGIA
  3. LYRICA [Suspect]
     Indication: NEUROPATHY PERIPHERAL
  4. MOBIC [Concomitant]
  5. SYNTHROID [Concomitant]
  6. OMEPRAZOLE [Concomitant]
  7. AMLODIPINE [Concomitant]
  8. ACETYLSALICYLIC ACID SRT [Concomitant]
  9. CYCLOSPORINE [Concomitant]
     Route: 047
  10. MICARDIS [Concomitant]

REACTIONS (6)
  - ABDOMINAL PAIN UPPER [None]
  - DRUG DOSE OMISSION [None]
  - DYSENTERY [None]
  - OEDEMA PERIPHERAL [None]
  - SLEEP DISORDER [None]
  - VISION BLURRED [None]
